FAERS Safety Report 6490177-9 (Version None)
Quarter: 2009Q4

REPORT INFORMATION
  Report Type: 
  Country: None (occurrence: None)
  Receive Date: 20091211
  Receipt Date: 20091012
  Transmission Date: 20100525
  Serious: No
  Sender: FDA-Public Use
  Company Number: A0811406A

PATIENT
  Age: 50 Year
  Sex: Male

DRUGS (2)
  1. FLONASE [Suspect]
     Route: 045
  2. ANTIHISTAMINES [Concomitant]

REACTIONS (2)
  - DIZZINESS [None]
  - OROPHARYNGEAL PAIN [None]
